FAERS Safety Report 17785053 (Version 1)
Quarter: 2020Q2

REPORT INFORMATION
  Report Type: Spontaneous
  Country: US (occurrence: US)
  Receive Date: 20200514
  Receipt Date: 20200514
  Transmission Date: 20200714
  Serious: No
  Sender: FDA-Public Use
  Company Number: None

PATIENT
  Age: 0 Day
  Sex: Female
  Weight: 69.3 kg

DRUGS (7)
  1. ELIQUIS [Concomitant]
     Active Substance: APIXABAN
  2. CLONAZEPAM. [Concomitant]
     Active Substance: CLONAZEPAM
  3. BIOTIN [Concomitant]
     Active Substance: BIOTIN
  4. LETROZOLE. [Concomitant]
     Active Substance: LETROZOLE
  5. KISQALI [Concomitant]
     Active Substance: RIBOCICLIB
  6. KISQALI [Suspect]
     Active Substance: RIBOCICLIB
     Indication: BREAST CANCER
     Route: 048
     Dates: start: 20200415
  7. FULVESTRANT. [Concomitant]
     Active Substance: FULVESTRANT

REACTIONS (1)
  - Epistaxis [None]

NARRATIVE: CASE EVENT DATE: 19600205
